FAERS Safety Report 7925059-6 (Version None)
Quarter: 2011Q4

REPORT INFORMATION
  Report Type: 
  Country: None (occurrence: None)
  Receive Date: 20111118
  Receipt Date: 20110331
  Transmission Date: 20120403
  Serious: No
  Sender: FDA-Public Use
  Company Number: US-AMGEN-USASP2011017337

PATIENT
  Age: 48 Year
  Sex: Female

DRUGS (1)
  1. ENBREL [Suspect]
     Indication: RHEUMATOID ARTHRITIS
     Dosage: 50 MG, QWK
     Dates: start: 20110302

REACTIONS (8)
  - ORAL HERPES [None]
  - PYREXIA [None]
  - INJECTION SITE PAIN [None]
  - HYPERACUSIS [None]
  - INJECTION SITE WARMTH [None]
  - PHOTOPHOBIA [None]
  - HEADACHE [None]
  - INJECTION SITE ERYTHEMA [None]
